FAERS Safety Report 11302506 (Version 1)
Quarter: 2015Q3

REPORT INFORMATION
  Report Type: Spontaneous
  Country: US (occurrence: US)
  Receive Date: 20150723
  Receipt Date: 20150723
  Transmission Date: 20151125
  Serious: Yes (Hospitalization)
  Sender: FDA-Public Use
  Company Number: US-JNJFOC-20150711607

PATIENT
  Sex: Female

DRUGS (2)
  1. REMICADE [Suspect]
     Active Substance: INFLIXIMAB
     Indication: PRODUCT USED FOR UNKNOWN INDICATION
     Route: 042
  2. REMICADE [Suspect]
     Active Substance: INFLIXIMAB
     Indication: PRODUCT USED FOR UNKNOWN INDICATION
     Dosage: 500 MG, 20TH INFUSION
     Route: 042
     Dates: start: 20150629

REACTIONS (4)
  - Blood pressure decreased [Unknown]
  - Tachycardia [Unknown]
  - Infusion related reaction [Unknown]
  - Cyanosis [Unknown]

NARRATIVE: CASE EVENT DATE: 20150629
